FAERS Safety Report 10432375 (Version 1)
Quarter: 2014Q3

REPORT INFORMATION
  Report Type: Spontaneous
  Country: US (occurrence: None)
  Receive Date: 20140815
  Receipt Date: 20140815
  Transmission Date: 20150326
  Serious: No
  Sender: FDA-Public Use
  Company Number: A-US2014-101395

PATIENT
  Age: 75 Year
  Sex: Female

DRUGS (9)
  1. JANUVIA [Concomitant]
     Active Substance: SITAGLIPTIN PHOSPHATE
  2. LASIX [Concomitant]
     Active Substance: FUROSEMIDE
  3. PRAVASTATIN (PRAVASTATIN SODIUM) [Concomitant]
  4. METOPROLOL (METOPROLOL) [Concomitant]
     Active Substance: METOPROLOL
  5. ALDACTONE [Concomitant]
     Active Substance: SPIRONOLACTONE
  6. OPSUMIT [Suspect]
     Active Substance: MACITENTAN
     Indication: PULMONARY HYPERTENSION
     Route: 048
     Dates: start: 20140601
  7. ASPIRIN (ACETYLSALICYLIC ACID) [Concomitant]
     Active Substance: ASPIRIN
  8. GLIZIDE (GLIZIDE) [Concomitant]
  9. REVATIO (SO;DEMAFIL CITRATE) [Concomitant]

REACTIONS (1)
  - Nasal congestion [None]

NARRATIVE: CASE EVENT DATE: 20140605
